FAERS Safety Report 13526341 (Version 1)
Quarter: 2017Q2

REPORT INFORMATION
  Report Type: Other
  Country: FR (occurrence: FR)
  Receive Date: 20170509
  Receipt Date: 20170509
  Transmission Date: 20170830
  Serious: Yes (Hospitalization, Other)
  Sender: FDA-Public Use
  Company Number: FR-TAKEDA-2017TUS009674

PATIENT
  Age: 72 Year
  Sex: Female

DRUGS (4)
  1. ENTYVIO [Suspect]
     Active Substance: VEDOLIZUMAB
     Indication: COLITIS
     Dosage: 300 MG, UNK
     Route: 042
     Dates: start: 20160502, end: 20160517
  2. LETROZOLE. [Suspect]
     Active Substance: LETROZOLE
     Indication: BREAST CANCER
     Dosage: 2.5 MG, QD
     Route: 048
     Dates: start: 201507
  3. PENTASA [Concomitant]
     Active Substance: MESALAMINE
     Indication: COLITIS
     Dosage: 4 G, QD
     Route: 048
     Dates: end: 201604
  4. PENTASA [Concomitant]
     Active Substance: MESALAMINE
     Dosage: UNK, QD
     Dates: end: 201604

REACTIONS (1)
  - Acute kidney injury [Recovered/Resolved]

NARRATIVE: CASE EVENT DATE: 20160517
